FAERS Safety Report 24674540 (Version 1)
Quarter: 2024Q4

REPORT INFORMATION
  Report Type: Spontaneous
  Country: GB (occurrence: GB)
  Receive Date: 20241128
  Receipt Date: 20241128
  Transmission Date: 20250114
  Serious: Yes (Disabling, Other)
  Sender: AUROBINDO
  Company Number: GB-MHRA-MED-202411141256143600-SNRZJ

PATIENT
  Age: 47 Year
  Sex: Female
  Weight: 61 kg

DRUGS (3)
  1. METRONIDAZOLE [Suspect]
     Active Substance: METRONIDAZOLE
     Indication: Adverse drug reaction
     Dosage: UNK
     Route: 065
     Dates: start: 20240716, end: 20240717
  2. NYSTATIN [Suspect]
     Active Substance: NYSTATIN
     Indication: Tooth infection
     Dosage: UNK
     Route: 065
     Dates: start: 20240716, end: 20240717
  3. CODEINE [Concomitant]
     Active Substance: CODEINE
     Indication: Pain
     Dosage: UNK
     Route: 065
     Dates: start: 20240716, end: 20240716

REACTIONS (7)
  - Insomnia [Not Recovered/Not Resolved]
  - Nervous system disorder [Unknown]
  - Anxiety [Unknown]
  - Decreased appetite [Unknown]
  - Palpitations [Unknown]
  - Abnormal loss of weight [Unknown]
  - Abdominal pain upper [Recovered/Resolved]

NARRATIVE: CASE EVENT DATE: 20240716
